FAERS Safety Report 23111436 (Version 1)
Quarter: 2023Q4

REPORT INFORMATION
  Report Type: Spontaneous
  Country: US (occurrence: US)
  Receive Date: 20231026
  Receipt Date: 20231026
  Transmission Date: 20240109
  Serious: Yes (Other)
  Sender: FDA-Public Use
  Company Number: US-TAKEDA-2023TUS101019

PATIENT

DRUGS (2)
  1. VYVANSE [Suspect]
     Active Substance: LISDEXAMFETAMINE DIMESYLATE
     Indication: Product used for unknown indication
     Dosage: 1 DOSAGE FORM, QD
     Route: 048
  2. VYVANSE [Suspect]
     Active Substance: LISDEXAMFETAMINE DIMESYLATE
     Dosage: 1 DOSAGE FORM, QD
     Route: 048

REACTIONS (8)
  - Myocardial infarction [Unknown]
  - Product physical issue [Unknown]
  - Feeling abnormal [Unknown]
  - Pain [Unknown]
  - Product colour issue [Unknown]
  - Tinnitus [Unknown]
  - Paraesthesia [Unknown]
  - Aggression [Unknown]
